FAERS Safety Report 9825414 (Version 1)
Quarter: 2014Q1

REPORT INFORMATION
  Report Type: Spontaneous
  Country: US (occurrence: US)
  Receive Date: 20140117
  Receipt Date: 20140117
  Transmission Date: 20141002
  Serious: No
  Sender: FDA-Public Use
  Company Number: US-PFIZER INC-2014011180

PATIENT
  Sex: Female

DRUGS (1)
  1. ADVIL [Suspect]
     Indication: INFLAMMATION
     Dosage: 200 MG, ONCE
     Route: 048
     Dates: start: 20140111, end: 20140111

REACTIONS (1)
  - Nausea [Unknown]
